FAERS Safety Report 10252185 (Version 1)
Quarter: 2014Q2

REPORT INFORMATION
  Report Type: Spontaneous
  Country: US (occurrence: None)
  Receive Date: 20140620
  Receipt Date: 20140620
  Transmission Date: 20141212
  Serious: Yes (Hospitalization)
  Sender: FDA-Public Use
  Company Number: None

PATIENT
  Age: 60 Year
  Sex: Male

DRUGS (2)
  1. CARBAMAZEPINE [Suspect]
     Dosage: MG, BID, PO
     Route: 048
     Dates: start: 20131121
  2. DIVALPROEX [Suspect]
     Dosage: MG, BID, PO
     Route: 048
     Dates: start: 20131024

REACTIONS (3)
  - Overdose [None]
  - Unresponsive to stimuli [None]
  - Unresponsive to stimuli [None]
